FAERS Safety Report 18599891 (Version 1)
Quarter: 2020Q4

REPORT INFORMATION
  Report Type: Spontaneous
  Country: GB (occurrence: GB)
  Receive Date: 20201210
  Receipt Date: 20201210
  Transmission Date: 20210114
  Serious: Yes (Other)
  Sender: FDA-Public Use
  Company Number: GB-BAYER-2020-252387

PATIENT
  Age: 20 Year
  Sex: Male

DRUGS (1)
  1. APROTININ [Suspect]
     Active Substance: APROTININ
     Indication: CARDIAC OPERATION
     Dosage: UNK
     Route: 042
     Dates: start: 20170901, end: 20170901

REACTIONS (2)
  - Type I hypersensitivity [Recovered/Resolved]
  - Urticaria [Unknown]

NARRATIVE: CASE EVENT DATE: 20170901
